FAERS Safety Report 9822325 (Version 4)
Quarter: 2014Q2

REPORT INFORMATION
  Report Type: Spontaneous
  Country: DE (occurrence: None)
  Receive Date: 20140115
  Receipt Date: 20140502
  Transmission Date: 20141212
  Serious: Yes (Hospitalization)
  Sender: FDA-Public Use
  Company Number: UTC-042695

PATIENT
  Age: 65 Year
  Sex: Male
  Weight: 104.7 kg

DRUGS (10)
  1. REMODULIN [Suspect]
     Indication: PULMONARY ARTERIAL HYPERTENSION
     Dosage: 44.928 UG/KG ( 0.0312 UG/KG, 1 IN 1 MIN), SUBCUTANEOUS
     Route: 058
     Dates: start: 201309
  2. MARCUMAR (PHENPROCOUMON) [Concomitant]
  3. OMEPRAZOLE [Concomitant]
  4. REVATIO (SILDENAFIL CITRATE) [Concomitant]
  5. VOLIBRIS (AMBRISENTAN) [Concomitant]
  6. SPIRIVA [Concomitant]
  7. ALDACTONE (SPIRONOLACTONE) [Concomitant]
  8. TOREM (TORASEMIDE) [Concomitant]
  9. NAPROXEN [Concomitant]
  10. RAMIPRIL [Concomitant]

REACTIONS (4)
  - Syncope [None]
  - Dyspnoea [None]
  - Fluid overload [None]
  - Staphylococcus test positive [None]
